FAERS Safety Report 14122788 (Version 1)
Quarter: 2017Q4

REPORT INFORMATION
  Report Type: Spontaneous
  Country: US (occurrence: None)
  Receive Date: 20171024
  Receipt Date: 20171024
  Transmission Date: 20180321
  Serious: Yes (Life-Threatening, Other)
  Sender: FDA-Public Use
  Company Number: None

PATIENT

DRUGS (1)
  1. ENOXAPARIN [Suspect]
     Active Substance: ENOXAPARIN
     Indication: THROMBOSIS PROPHYLAXIS
     Dosage: 30 MG/0.3 ML DAILY OR BID SUBCUTANEOUS INJECTION
     Route: 058
     Dates: start: 20171017, end: 20171024

REACTIONS (4)
  - Circumstance or information capable of leading to device use error [None]
  - Device defective [None]
  - Device issue [None]
  - Needle issue [None]

NARRATIVE: CASE EVENT DATE: 20171017
